FAERS Safety Report 24323574 (Version 1)
Quarter: 2024Q3

REPORT INFORMATION
  Report Type: Spontaneous
  Country: CN (occurrence: CN)
  Receive Date: 20240916
  Receipt Date: 20240916
  Transmission Date: 20241016
  Serious: Yes (Other)
  Sender: PFIZER
  Company Number: CN-PFIZER INC-PV202400120056

PATIENT
  Age: 20 Year
  Sex: Male
  Weight: 63 kg

DRUGS (4)
  1. ZYVOX [Suspect]
     Active Substance: LINEZOLID
     Indication: Ligament rupture
     Dosage: 600 MG, 2X/DAY
     Route: 048
     Dates: start: 20240822, end: 20240827
  2. ZYVOX [Suspect]
     Active Substance: LINEZOLID
     Indication: Anti-infective therapy
  3. MOXIFLOXACIN HYDROCHLORIDE [Suspect]
     Active Substance: MOXIFLOXACIN HYDROCHLORIDE\MOXIFLOXACIN HYDROCHLORIDE MONOHYDRATE
     Indication: Ligament rupture
     Dosage: 0.4 G, 1X/DAY
     Route: 041
     Dates: start: 20240822, end: 20240824
  4. MOXIFLOXACIN HYDROCHLORIDE [Suspect]
     Active Substance: MOXIFLOXACIN HYDROCHLORIDE\MOXIFLOXACIN HYDROCHLORIDE MONOHYDRATE
     Indication: Anti-infective therapy

REACTIONS (6)
  - Rash erythematous [Recovering/Resolving]
  - Pruritus [Recovering/Resolving]
  - Lip swelling [Recovering/Resolving]
  - Lip erythema [Recovering/Resolving]
  - Rash [Recovering/Resolving]
  - Drug hypersensitivity [Recovering/Resolving]

NARRATIVE: CASE EVENT DATE: 20240801
